FAERS Safety Report 8148761 (Version 2)
Quarter: 2013Q1

REPORT INFORMATION
  Report Type: Spontaneous
  Country: US (occurrence: US)
  Receive Date: 20110922
  Receipt Date: 20130325
  Transmission Date: 20140127
  Serious: No
  Sender: FDA-Public Use
  Company Number: US-ASTRAZENECA-2011SE04777

PATIENT
  Age: 54 Year
  Sex: Male

DRUGS (4)
  1. SEROQUEL XR [Suspect]
     Route: 048
  2. DEPAKOTE [Concomitant]
  3. PROZACK [Concomitant]
  4. KEROKLEON [Concomitant]

REACTIONS (6)
  - Apathy [Unknown]
  - Bipolar disorder [Unknown]
  - Depression [Unknown]
  - Anxiety [Unknown]
  - Sleep disorder [Unknown]
  - Feeling abnormal [Unknown]
